FAERS Safety Report 8827578 (Version 1)
Quarter: 2012Q4

REPORT INFORMATION
  Report Type: 
  Country: IT (occurrence: IT)
  Receive Date: 20121005
  Receipt Date: 20121005
  Transmission Date: 20130627
  Serious: Yes (Hospitalization)
  Sender: FDA-Public Use
  Company Number: IT-TEVA-361148ISR

PATIENT
  Age: 82 Year
  Sex: Female

DRUGS (2)
  1. PARACETAMOL [Suspect]
     Indication: MUSCULOSKELETAL CHEST PAIN
     Dosage: 1000 Milligram Daily;
     Route: 048
     Dates: start: 20120831, end: 20120831
  2. BENTELAN [Concomitant]
     Route: 048

REACTIONS (1)
  - Swelling [Unknown]
